FAERS Safety Report 7530375-6 (Version None)
Quarter: 2011Q2

REPORT INFORMATION
  Report Type: 
  Country: None (occurrence: None)
  Receive Date: 20110607
  Receipt Date: 20110526
  Transmission Date: 20111010
  Serious: Yes (Other)
  Sender: FDA-Public Use
  Company Number: PT-ELI_LILLY_AND_COMPANY-PT201105008350

PATIENT
  Age: 75 Year
  Sex: Female

DRUGS (10)
  1. OMEPRAZOLE [Concomitant]
     Indication: PROPHYLAXIS
     Dosage: 20 MG, QD
     Route: 048
  2. NIFEDIPINE [Concomitant]
     Indication: HYPERTENSION
     Dosage: 30 MG, QD
     Route: 048
  3. WARFARIN SODIUM [Concomitant]
     Indication: ANTICOAGULANT THERAPY
     Dosage: UNK UNK, QD
     Route: 048
  4. FORTEO [Suspect]
     Indication: OSTEOPOROSIS
     Dosage: 20 UG, QD
     Route: 058
     Dates: start: 20110507
  5. FUROSEMIDE [Concomitant]
     Indication: DIURETIC THERAPY
     Dosage: 20 MG, QD
     Route: 048
  6. PAROXETINE [Concomitant]
     Indication: ANTIDEPRESSANT THERAPY
     Dosage: 20 MG, QD
     Route: 048
  7. TRAZODONE HCL [Concomitant]
     Indication: ANTIDEPRESSANT THERAPY
     Dosage: 150 MG, QD
     Route: 048
  8. SENNOSIDE A+B [Concomitant]
     Indication: LAXATIVE SUPPORTIVE CARE
     Dosage: 12 MG, QD
     Route: 048
  9. CALCIUM + VITAMIN D [Concomitant]
     Indication: OSTEOPOROSIS
     Dosage: UNK, BID
     Route: 048
  10. CLONAZEPAM [Concomitant]
     Indication: CONVULSION
     Dosage: 0.5 MG, QD
     Route: 048

REACTIONS (2)
  - PRURITUS [None]
  - VERTEBROPLASTY [None]
